FAERS Safety Report 19423307 (Version 2)
Quarter: 2021Q3

REPORT INFORMATION
  Report Type: Spontaneous
  Country: DE (occurrence: DE)
  Receive Date: 20210616
  Receipt Date: 20210705
  Transmission Date: 20211014
  Serious: No
  Sender: FDA-Public Use
  Company Number: DE-LUPIN PHARMACEUTICALS INC.-2021-09506

PATIENT
  Age: 22 Year
  Sex: Female

DRUGS (9)
  1. MAGNESIUM CITRATE. [Suspect]
     Active Substance: MAGNESIUM CITRATE
     Dosage: 400 MILLIGRAM, QID
     Route: 048
  2. POTASSIUM CHLORIDE. [Suspect]
     Active Substance: POTASSIUM CHLORIDE
     Dosage: 2400 MILLIGRAM, TID
     Route: 048
  3. OXYTOCIN. [Suspect]
     Active Substance: OXYTOCIN
     Indication: UTERINE CONTRACTIONS DURING PREGNANCY
     Dosage: 3 INTERNATIONAL UNIT
     Route: 042
  4. PHENYLEPHRINE [Suspect]
     Active Substance: PHENYLEPHRINE HYDROCHLORIDE
     Indication: PROPHYLAXIS
     Dosage: UNK
     Route: 065
  5. SUFENTANIL [Suspect]
     Active Substance: SUFENTANIL
     Indication: SPINAL ANAESTHESIA
     Dosage: 5 MICROGRAM, SINGLE?SPINAL
     Route: 065
  6. MAGNESIUM CITRATE. [Suspect]
     Active Substance: MAGNESIUM CITRATE
     Indication: GITELMAN^S SYNDROME
     Dosage: 400 MILLIGRAM, BID
     Route: 048
  7. BUPIVACAINE. [Suspect]
     Active Substance: BUPIVACAINE
     Indication: SPINAL ANAESTHESIA
     Dosage: 1.6 MILLILITER, SINGLE ?SPINAL (1.6 ML OF HYPERBARIC BUPIVACAINE 0.5 PERCENT (8 MG))
     Route: 065
  8. OXYTOCIN. [Suspect]
     Active Substance: OXYTOCIN
     Dosage: 12 INTERNATIONAL UNIT PER HOUR
     Route: 042
  9. POTASSIUM CHLORIDE. [Suspect]
     Active Substance: POTASSIUM CHLORIDE
     Indication: GITELMAN^S SYNDROME
     Dosage: 1200 MILLIGRAM, TID
     Route: 048

REACTIONS (2)
  - Exposure during pregnancy [Unknown]
  - Normal newborn [Unknown]
